FAERS Safety Report 5406053-6 (Version None)
Quarter: 2007Q3

REPORT INFORMATION
  Report Type: 
  Country: None (occurrence: None)
  Receive Date: 20070806
  Receipt Date: 20070725
  Transmission Date: 20080115
  Serious: Yes (Other)
  Sender: FDA-Public Use
  Company Number: B0477897A

PATIENT
  Age: 68 Year
  Sex: Female
  Weight: 111 kg

DRUGS (11)
  1. AVANDAMET [Suspect]
     Route: 048
     Dates: start: 20051214, end: 20070402
  2. ATARAX [Concomitant]
     Dosage: 25MG AS REQUIRED
     Dates: start: 20040209
  3. NORMORIX MITE [Concomitant]
     Dosage: 1TAB PER DAY
     Dates: start: 20060828
  4. LEVAXIN [Concomitant]
     Dosage: .05MG PER DAY
     Dates: start: 20061124
  5. TROMBYL [Concomitant]
     Dosage: 75MG PER DAY
     Dates: start: 20061124
  6. LIPITOR [Concomitant]
     Dosage: 10MG PER DAY
     Dates: start: 20061124
  7. RANITIDINE HCL [Concomitant]
     Dosage: 150MG TWICE PER DAY
     Dates: start: 20061124
  8. ATENOLOL [Concomitant]
     Dosage: 25MG PER DAY
     Dates: start: 20061124
  9. BEHEPAN [Concomitant]
     Dosage: 1MG PER DAY
     Dates: start: 20070312
  10. FLUOXETINE [Concomitant]
     Dosage: 20MG PER DAY
     Dates: start: 20070402
  11. METFORMIN HCL [Concomitant]
     Dosage: 500MG THREE TIMES PER DAY
     Dates: start: 20070402

REACTIONS (12)
  - ANAEMIA [None]
  - BLOOD CHOLESTEROL DECREASED [None]
  - GLYCOSYLATED HAEMOGLOBIN INCREASED [None]
  - HAEMATOCRIT DECREASED [None]
  - HAEMOGLOBIN DECREASED [None]
  - MEAN CELL HAEMOGLOBIN CONCENTRATION DECREASED [None]
  - MEAN CELL HAEMOGLOBIN DECREASED [None]
  - MEAN CELL VOLUME DECREASED [None]
  - PLATELET COUNT INCREASED [None]
  - RED BLOOD CELL COUNT DECREASED [None]
  - SERUM FERRITIN DECREASED [None]
  - WHITE BLOOD CELL COUNT INCREASED [None]
